FAERS Safety Report 7361984-5 (Version None)
Quarter: 2011Q1

REPORT INFORMATION
  Report Type: 
  Country: None (occurrence: None)
  Receive Date: 20110318
  Receipt Date: 20110314
  Transmission Date: 20110831
  Serious: Yes (Death)
  Sender: FDA-Public Use
  Company Number: GT-BAYER-2011-021010

PATIENT
  Sex: Male
  Weight: 100 kg

DRUGS (4)
  1. DUPHALAC [Concomitant]
  2. NEXAVAR [Suspect]
     Indication: HEPATIC NEOPLASM MALIGNANT
     Dosage: 400 MG, QD
     Route: 048
     Dates: start: 20110104, end: 20110223
  3. UNCODEABLE ^UNCLASSIFIABLE^ [Concomitant]
  4. UNCODEABLE ^UNCLASSIFIABLE^ [Concomitant]
     Indication: HEPATIC NEOPLASM MALIGNANT
     Dosage: UNK

REACTIONS (2)
  - PULMONARY EMBOLISM [None]
  - PALMAR-PLANTAR ERYTHRODYSAESTHESIA SYNDROME [None]
